FAERS Safety Report 24545541 (Version 1)
Quarter: 2024Q4

REPORT INFORMATION
  Report Type: Spontaneous
  Country: US (occurrence: US)
  Receive Date: 20241024
  Receipt Date: 20241024
  Transmission Date: 20250114
  Serious: Yes (Other)
  Sender: APELLIS PHARMACEUTICALS
  Company Number: US-APELLIS PHARMACEUTICALS-APL-2024-004338

PATIENT

DRUGS (1)
  1. SYFOVRE [Suspect]
     Active Substance: PEGCETACOPLAN
     Dosage: UNK
     Dates: start: 20240304

REACTIONS (5)
  - Iritis [Unknown]
  - Iritis [Unknown]
  - Vitritis [Unknown]
  - Eye inflammation [Unknown]
  - Intervertebral disc disorder [Unknown]
